FAERS Safety Report 7983681-5 (Version None)
Quarter: 2011Q4

REPORT INFORMATION
  Report Type: 
  Country: None (occurrence: None)
  Receive Date: 20111215
  Receipt Date: 20111206
  Transmission Date: 20120403
  Serious: Yes (Other)
  Sender: FDA-Public Use
  Company Number: US-US-EMD SERONO, INC.-232228J10USA

PATIENT
  Sex: Female
  Weight: 113 kg

DRUGS (19)
  1. ASPIRIN [Concomitant]
     Dates: start: 20070607
  2. SIMVASTATIN [Concomitant]
     Route: 048
  3. LISINOPRIL [Concomitant]
     Indication: HYPERTENSION
     Route: 048
     Dates: start: 20070609
  4. MULTIVITAMIN/IRON [Concomitant]
     Route: 048
  5. GLUCOVANCE [Concomitant]
     Route: 048
  6. CETIRIZINE HCL [Concomitant]
     Route: 048
  7. GLYBURIDE [Concomitant]
     Indication: TYPE 2 DIABETES MELLITUS
  8. SYNTHROID [Concomitant]
     Route: 048
     Dates: start: 20110310
  9. GLUCOTROL XL [Concomitant]
     Route: 048
     Dates: start: 20101111
  10. HYDROCHLOROTHIAZIDE [Concomitant]
     Route: 048
     Dates: start: 20070607
  11. ADDERALL 5 [Concomitant]
     Route: 048
     Dates: start: 20110915
  12. CETRIZINE HCL [Concomitant]
     Route: 048
     Dates: start: 20070607
  13. LOVAZA [Concomitant]
     Route: 048
     Dates: start: 20100712
  14. VITAMIN D [Concomitant]
     Route: 048
     Dates: start: 20070912
  15. REBIF [Suspect]
     Indication: MULTIPLE SCLEROSIS
     Route: 058
     Dates: start: 20070803
  16. MAGNESIUM SULFATE [Concomitant]
     Dates: start: 20090727
  17. METFORMIN HCL [Concomitant]
     Route: 048
  18. ROSIGLITAZONE [Concomitant]
     Route: 048
  19. VYTORIN [Concomitant]
     Dosage: 10-20 MG
     Route: 048
     Dates: start: 20070724

REACTIONS (7)
  - COLONIC POLYP [None]
  - GAIT DISTURBANCE [None]
  - THYROID NEOPLASM [None]
  - DIABETES MELLITUS [None]
  - THYROID CANCER [None]
  - DIVERTICULUM INTESTINAL [None]
  - VERTIGO [None]
